FAERS Safety Report 4843005-9 (Version None)
Quarter: 2005Q4

REPORT INFORMATION
  Report Type: 
  Country: None (occurrence: None)
  Receive Date: 20051201
  Receipt Date: 20040514
  Transmission Date: 20060501
  Serious: Yes (Other)
  Sender: FDA-Public Use
  Company Number: US-ROCHE-367770

PATIENT
  Age: 55 Year
  Sex: Male
  Weight: 79.8 kg

DRUGS (12)
  1. DACLIZUMAB [Suspect]
     Route: 042
     Dates: start: 20020930, end: 20020930
  2. DACLIZUMAB [Suspect]
     Dosage: FOR A TOTAL OF 4 TIMES.
     Route: 042
     Dates: start: 20021014, end: 20021112
  3. MYCOPHENOLATE MOFETIL [Suspect]
     Route: 048
     Dates: start: 20020930
  4. NEORAL [Suspect]
     Dosage: TDD CHANGED TO 125 MG ON 14 SEPTEMBER 2004.
     Route: 065
     Dates: start: 20021005
  5. PREDNISONE [Suspect]
     Route: 065
     Dates: start: 20021203
  6. LOTENSIN [Concomitant]
     Dosage: TDD CHANGED TO 30 MG ON 24 MARCH 2005.
     Dates: start: 20021015
  7. CLONIDINE [Concomitant]
     Dates: start: 20021126
  8. ZANTAC [Concomitant]
     Dates: start: 20021001
  9. ALLOPURINOL [Concomitant]
     Dates: start: 20030404
  10. MULTI-VITAMIN [Concomitant]
     Dates: start: 20021001
  11. COTRIM [Concomitant]
     Dates: start: 20021001
  12. PRAVACHOL [Concomitant]
     Dates: start: 20021126

REACTIONS (3)
  - BASAL CELL CARCINOMA [None]
  - SKIN CANCER [None]
  - SQUAMOUS CELL CARCINOMA OF SKIN [None]
